FAERS Safety Report 22601022 (Version 2)
Quarter: 2023Q2

REPORT INFORMATION
  Report Type: Spontaneous
  Country: US (occurrence: US)
  Receive Date: 20230614
  Receipt Date: 20230628
  Transmission Date: 20230722
  Serious: No
  Sender: FDA-Public Use
  Company Number: US-PFIZER INC-202300217522

PATIENT
  Age: 31 Year
  Sex: Female
  Weight: 135 kg

DRUGS (3)
  1. OXBRYTA [Suspect]
     Active Substance: VOXELOTOR
     Indication: Sickle cell anaemia
     Dosage: 500 MG, 1X/DAY
     Route: 048
     Dates: start: 20221006
  2. HYDROXYUREA [Concomitant]
     Active Substance: HYDROXYUREA
     Dosage: 500 MG (TAKE ONE MONDAY TO FRIDAY AND THEN I TAKE 2 CAPSULES SAT AND SUN)
     Dates: start: 202011
  3. HYDROXYUREA [Concomitant]
     Active Substance: HYDROXYUREA
     Dosage: UNK (CHANGED THE AMOUNT THAT BEEN TAKING)

REACTIONS (2)
  - Therapeutic response unexpected [Unknown]
  - Off label use [Unknown]

NARRATIVE: CASE EVENT DATE: 20221006
